FAERS Safety Report 20764032 (Version 2)
Quarter: 2022Q2

REPORT INFORMATION
  Report Type: Report from Study
  Country: DO (occurrence: DO)
  Receive Date: 20220428
  Receipt Date: 20220503
  Transmission Date: 20220721
  Serious: Yes (Hospitalization)
  Sender: FDA-Public Use
  Company Number: DO-JNJFOC-20220450861

PATIENT
  Sex: Male
  Weight: 85 kg

DRUGS (2)
  1. BORTEZOMIB [Suspect]
     Active Substance: BORTEZOMIB
     Indication: Plasma cell myeloma
     Dosage: UNK
     Route: 065
  2. DARATUMUMAB [Suspect]
     Active Substance: DARATUMUMAB
     Indication: Plasma cell myeloma
     Dosage: 16 MILLIGRAM/KILOGRAM, 1/WEEK
     Route: 042
     Dates: start: 20210826

REACTIONS (3)
  - Transfusion [Unknown]
  - Adverse event [Unknown]
  - Pain [Unknown]
